FAERS Safety Report 9255495 (Version 1)
Quarter: 2013Q1

REPORT INFORMATION
  Report Type: Spontaneous
  Country: US (occurrence: None)
  Receive Date: 20121212
  Receipt Date: 20121212
  Transmission Date: 20140127
  Serious: No
  Sender: FDA-Public Use
  Company Number: 1208USA006539

PATIENT
  Age: 53 Year
  Sex: Female

DRUGS (2)
  1. VICTRELIS [Suspect]
     Indication: HEPATITIS C
     Route: 048
     Dates: start: 20120625
  2. PEGASYS [Suspect]
     Dates: start: 20120607

REACTIONS (5)
  - Dysgeusia [None]
  - Nausea [None]
  - Vomiting [None]
  - Fatigue [None]
  - Asthenia [None]
